FAERS Safety Report 5431041-3 (Version None)
Quarter: 2007Q3

REPORT INFORMATION
  Report Type: 
  Country: None (occurrence: None)
  Receive Date: 20070830
  Receipt Date: 20070122
  Transmission Date: 20080115
  Serious: No
  Sender: FDA-Public Use
  Company Number: A0636510A

PATIENT
  Age: 45 Year
  Sex: Female

DRUGS (2)
  1. WELLBUTRIN XL [Suspect]
     Indication: DEPRESSION
     Dosage: 450MG PER DAY
     Route: 048
     Dates: start: 20060101
  2. PREVACID [Concomitant]

REACTIONS (4)
  - DYSPHAGIA [None]
  - ILL-DEFINED DISORDER [None]
  - NASAL DISCOMFORT [None]
  - NASAL DRYNESS [None]
